FAERS Safety Report 9562825 (Version 2)
Quarter: 2013Q3

REPORT INFORMATION
  Report Type: Report from Study
  Country: US (occurrence: US)
  Receive Date: 20130927
  Receipt Date: 20130927
  Transmission Date: 20140515
  Serious: Yes (Hospitalization)
  Sender: FDA-Public Use
  Company Number: US-SANOFI-AVENTIS-CAMP-1002210

PATIENT
  Age: 40 Year
  Sex: Female
  Weight: 67.8 kg

DRUGS (29)
  1. ALEMTUZUMAB [Suspect]
     Indication: MULTIPLE SCLEROSIS
     Dosage: 12 MG, QD
     Route: 042
     Dates: start: 20110622, end: 20110624
  2. METHYLPREDNISOLONE [Concomitant]
     Indication: MULTIPLE SCLEROSIS
     Dosage: 1 G, QD
     Route: 042
     Dates: start: 20110622, end: 20110624
  3. METHYLPREDNISOLONE [Concomitant]
     Indication: PRODUCT USED FOR UNKNOWN INDICATION
     Dosage: 1000 MG, QD
     Dates: start: 20120217, end: 20120221
  4. METHYLPREDNISOLONE [Concomitant]
     Indication: MULTIPLE SCLEROSIS RELAPSE
     Dosage: 1000 MG, QD
     Route: 042
     Dates: start: 20120415
  5. BACLOFEN [Concomitant]
     Indication: MUSCLE SPASMS
     Dosage: 60 MG, QD
     Route: 048
     Dates: start: 20091207
  6. VITAMIN B12 [Concomitant]
     Indication: NUTRITIONAL SUPPLEMENTATION
     Dosage: 1 ML,MONTHLY
     Route: 048
     Dates: start: 200712
  7. AMBIEN [Concomitant]
     Indication: INSOMNIA
     Dosage: 10 MG, PRN
     Route: 048
     Dates: start: 200901
  8. VALIUM [Concomitant]
     Indication: ANXIETY
     Dosage: 5 MG, PRN
     Route: 048
     Dates: start: 20090721
  9. HYDROCODONE BITARTRATE/PARACETAMOL [Concomitant]
     Indication: PAIN
     Dosage: 5/500 MG, PRN
     Route: 048
     Dates: start: 20100710
  10. HYDROCODONE BITARTRATE/PARACETAMOL [Concomitant]
     Indication: BACK PAIN
     Dosage: 5/500 MG, PRN
     Route: 048
     Dates: start: 20100710
  11. HYDROCODONE BITARTRATE/PARACETAMOL [Concomitant]
     Indication: PAIN IN EXTREMITY
     Dosage: 5/500 MG, PRN
     Route: 048
     Dates: start: 20100710
  12. FLEXERIL [Concomitant]
     Indication: PAIN
     Dosage: 10 MG, PRN
     Route: 048
     Dates: start: 20110708
  13. ZOLOFT [Concomitant]
     Indication: ANXIETY
     Dosage: 100 MG, QD
     Route: 048
     Dates: start: 20110728
  14. OMEPRAZOLE [Concomitant]
     Indication: GASTROOESOPHAGEAL REFLUX DISEASE
     Dosage: 40 MG, QD
     Route: 048
     Dates: start: 20110722
  15. REGLAN [Concomitant]
     Indication: NAUSEA
     Dosage: 10 MG, TID
     Route: 048
     Dates: start: 20120401
  16. CALCIUM CARBONATE [Concomitant]
     Indication: NUTRITIONAL SUPPLEMENTATION
     Dosage: 600 MG, BID
     Route: 048
     Dates: start: 20110314
  17. DIAZEPAM [Concomitant]
     Indication: MUSCLE SPASMS
     Dosage: 5 MG, BID
     Route: 048
     Dates: start: 20120319
  18. FENTANYL [Concomitant]
     Indication: BACK PAIN
     Dosage: 75 MCG, QD
     Route: 061
     Dates: start: 20120412
  19. FENTANYL [Concomitant]
     Indication: PAIN
     Dosage: 75 MCG, QD
     Route: 061
     Dates: start: 20120412
  20. CYMBALTA [Concomitant]
     Indication: PAIN
     Dosage: 30 MG, QD
     Route: 048
     Dates: start: 20120416
  21. ALBUTEROL [Concomitant]
     Indication: ASTHMA
     Dosage: 2 UNK, PRN DOSE:2 UNKNOWN
     Route: 050
     Dates: start: 20090721
  22. ZOFRAN [Concomitant]
     Indication: VOMITING
     Dosage: 8 MG, PRN
     Route: 048
  23. FERROUS GLUCONATE [Concomitant]
     Indication: NUTRITIONAL SUPPLEMENTATION
     Dosage: 324 MG, QW
     Route: 048
     Dates: start: 20101110
  24. NITROGLYCERIN ^A.L.^ [Concomitant]
     Indication: ANGINA PECTORIS
     Dosage: 0.4 MG, PRN
     Route: 048
     Dates: start: 20110314
  25. NEXIUM [Concomitant]
     Indication: GASTROOESOPHAGEAL REFLUX DISEASE
     Dosage: 40 MG, QD
     Route: 048
  26. NITROFURANTOIN [Concomitant]
     Indication: PRODUCT USED FOR UNKNOWN INDICATION
     Dosage: 30 MG, QD
     Route: 048
  27. TORADOL [Concomitant]
     Indication: PAIN
     Dosage: 30 MG, UNK
  28. PROCHLORPERAZINE [Concomitant]
     Indication: PAIN
     Dosage: 10 MG, UNK
  29. ATENOLOL [Concomitant]
     Indication: TREMOR
     Dosage: 25 MG, BID
     Route: 048

REACTIONS (1)
  - Hyperthyroidism [Recovered/Resolved]
